FAERS Safety Report 18021977 (Version 2)
Quarter: 2020Q3

REPORT INFORMATION
  Report Type: Report from Study
  Country: AR (occurrence: AR)
  Receive Date: 20200714
  Receipt Date: 20200730
  Transmission Date: 20201103
  Serious: Yes (Hospitalization, Other)
  Sender: FDA-Public Use
  Company Number: NVSC2020AR196130

PATIENT
  Sex: Male

DRUGS (6)
  1. SINTROM (ACENOCOUMAROL) [Suspect]
     Active Substance: ACENOCOUMAROL
     Indication: PRODUCT USED FOR UNKNOWN INDICATION
     Dosage: (1.4 UNITS)
     Route: 065
  2. ENALAPRIL [Concomitant]
     Active Substance: ENALAPRIL
     Indication: PRODUCT USED FOR UNKNOWN INDICATION
     Dosage: UNK, BID
     Route: 065
  3. ENTRESTO [Suspect]
     Active Substance: SACUBITRIL\VALSARTAN
     Indication: CORONARY ARTERY DISEASE
     Dosage: 1 DF, QD
     Route: 065
     Dates: start: 2019
  4. OMEPRAZOLE. [Concomitant]
     Active Substance: OMEPRAZOLE
     Indication: PRODUCT USED FOR UNKNOWN INDICATION
     Dosage: 1 DF, BEFORE EVRY MEAL
     Route: 065
  5. CORBIS [Concomitant]
     Indication: PRODUCT USED FOR UNKNOWN INDICATION
     Dosage: 5 MG, BID
     Route: 065
  6. TANSILOPROST DUO [Concomitant]
     Indication: PRODUCT USED FOR UNKNOWN INDICATION
     Dosage: 1 DF, QD
     Route: 065

REACTIONS (6)
  - Cardiac failure [Unknown]
  - Confusional state [Recovering/Resolving]
  - Fluid retention [Unknown]
  - Cerebrovascular accident [Recovering/Resolving]
  - Blood pressure increased [Unknown]
  - Inappropriate schedule of product administration [Unknown]

NARRATIVE: CASE EVENT DATE: 2019
